FAERS Safety Report 24327963 (Version 5)
Quarter: 2024Q4

REPORT INFORMATION
  Report Type: Spontaneous
  Country: IN (occurrence: IN)
  Receive Date: 20240917
  Receipt Date: 20241203
  Transmission Date: 20250115
  Serious: Yes (Other)
  Sender: PFIZER
  Company Number: IN-PFIZER INC-PV202400043237

PATIENT
  Age: 69 Year
  Sex: Male

DRUGS (5)
  1. LORLATINIB [Suspect]
     Active Substance: LORLATINIB
     Indication: Lung adenocarcinoma
     Dosage: 50 MG
     Dates: start: 20240104
  2. LORLATINIB [Suspect]
     Active Substance: LORLATINIB
     Dosage: 100 MG, OD (1-0-0 TO CONTINUE, 4 MONTHS)
     Route: 048
     Dates: start: 20240131
  3. LORLATINIB [Suspect]
     Active Substance: LORLATINIB
     Dosage: 75 MG, OD (ONCE A DAY, TO CONTINUE, 4 MONTHS)
     Route: 048
     Dates: end: 20240822
  4. LORLATINIB [Suspect]
     Active Substance: LORLATINIB
     Dosage: 50 MG, 1X/DAY
     Route: 048
  5. LORLATINIB [Suspect]
     Active Substance: LORLATINIB
     Dosage: 75 MG, 1X/DAY (25MG 3-0-0 X 3MONTHS)
     Route: 048

REACTIONS (4)
  - Hallucination [Unknown]
  - Somnolence [Unknown]
  - Malaise [Unknown]
  - Memory impairment [Unknown]
